FAERS Safety Report 15190140 (Version 1)
Quarter: 2018Q3

REPORT INFORMATION
  Report Type: Spontaneous
  Country: SE (occurrence: SE)
  Receive Date: 20180724
  Receipt Date: 20180724
  Transmission Date: 20181010
  Serious: Yes (Other)
  Sender: FDA-Public Use
  Company Number: SE-ENDO PHARMACEUTICALS INC-2018-040196

PATIENT
  Age: 45 Year
  Sex: Female

DRUGS (3)
  1. TESTOGEL [Suspect]
     Active Substance: TESTOSTERONE
     Indication: TRANS-SEXUALISM
     Dosage: UNK UNKNOWN, UNKNOWN
     Route: 065
  2. AVEED [Suspect]
     Active Substance: TESTOSTERONE UNDECANOATE
     Dosage: UNK UNKNOWN, UNKNOWN
     Route: 065
     Dates: start: 2016, end: 2016
  3. AVEED [Suspect]
     Active Substance: TESTOSTERONE UNDECANOATE
     Indication: GENDER REASSIGNMENT THERAPY
     Dosage: 1000 MG/ML, EVERY 13 WEEKS
     Route: 065
     Dates: start: 2009

REACTIONS (10)
  - Pulmonary oil microembolism [Recovered/Resolved]
  - Panic attack [Recovered/Resolved]
  - Cough [Recovered/Resolved]
  - Malaise [Recovered/Resolved]
  - Anxiety [Recovered/Resolved]
  - Heart rate increased [Recovered/Resolved]
  - Off label use [Unknown]
  - Malaise [Recovered/Resolved]
  - Cough [Unknown]
  - Hypersensitivity [Unknown]

NARRATIVE: CASE EVENT DATE: 2014
